FAERS Safety Report 19084383 (Version 1)
Quarter: 2021Q2

REPORT INFORMATION
  Report Type: Report from Study
  Country: US (occurrence: US)
  Receive Date: 20210401
  Receipt Date: 20210401
  Transmission Date: 20210717
  Serious: Yes (Hospitalization)
  Sender: FDA-Public Use
  Company Number: US-BAYER-2021-112124

PATIENT
  Age: 49 Year
  Sex: Male
  Weight: 61.68 kg

DRUGS (3)
  1. ADEMPAS [Suspect]
     Active Substance: RIOCIGUAT
     Indication: PULMONARY ARTERIAL HYPERTENSION
     Dosage: UNK
     Dates: start: 20200506
  2. OPSUMIT [Concomitant]
     Active Substance: MACITENTAN
  3. ADEMPAS [Suspect]
     Active Substance: RIOCIGUAT
     Indication: PULMONARY ARTERIAL HYPERTENSION
     Dosage: 2.5 MG, TID
     Route: 048

REACTIONS (9)
  - Blood glucose decreased [None]
  - Dizziness [None]
  - Blood magnesium decreased [None]
  - Cardiac flutter [None]
  - Blood potassium decreased [None]
  - Syncope [None]
  - Blood pressure decreased [None]
  - Product dose omission issue [None]
  - Dizziness [None]

NARRATIVE: CASE EVENT DATE: 202103
